FAERS Safety Report 5146518-8 (Version None)
Quarter: 2006Q4

REPORT INFORMATION
  Report Type: 
  Country: None (occurrence: None)
  Receive Date: 20061109
  Receipt Date: 20061030
  Transmission Date: 20070319
  Serious: Yes (Hospitalization)
  Sender: FDA-Public Use
  Company Number: US-JNJFOC-20061100035

PATIENT
  Sex: Female
  Weight: 81.65 kg

DRUGS (15)
  1. FENTANYL TRANSDERMAL SYSTEM [Suspect]
     Indication: FIBROMYALGIA
     Route: 062
  2. FENTANYL CITRATE [Suspect]
     Route: 062
  3. FENTANYL CITRATE [Suspect]
     Route: 062
  4. FENTANYL CITRATE [Suspect]
     Indication: BACK PAIN
     Route: 062
  5. FENTANYL CITRATE [Suspect]
     Indication: FIBROMYALGIA
     Route: 062
  6. CARDIA [Concomitant]
     Indication: MYOCARDIAL INFARCTION
     Route: 048
  7. NEXIUM [Concomitant]
     Indication: GASTROOESOPHAGEAL REFLUX DISEASE
     Route: 048
  8. TRAZODONE HCL [Concomitant]
     Route: 065
  9. PREDNISONE TAB [Concomitant]
     Route: 065
  10. CYMBALTA [Concomitant]
     Indication: HYPOAESTHESIA
     Route: 048
  11. PRIMIDONE [Concomitant]
     Route: 048
  12. DIOVAN [Concomitant]
     Route: 048
  13. AZOPT [Concomitant]
     Indication: MACULAR DEGENERATION
     Route: 031
  14. ALPHAGAN [Concomitant]
     Indication: MACULAR DEGENERATION
     Route: 031
  15. LUMIGAN [Concomitant]
     Indication: MACULAR DEGENERATION
     Route: 031

REACTIONS (6)
  - ANOREXIA [None]
  - BACK PAIN [None]
  - BRADYPHRENIA [None]
  - GALLBLADDER DISORDER [None]
  - NAUSEA [None]
  - SPINAL COMPRESSION FRACTURE [None]
